FAERS Safety Report 11619378 (Version 2)
Quarter: 2015Q4

REPORT INFORMATION
  Report Type: Other
  Country: IT (occurrence: IT)
  Receive Date: 20151012
  Receipt Date: 20151021
  Transmission Date: 20160304
  Serious: Yes (Death)
  Sender: FDA-Public Use
  Company Number: IT-MYLANLABS-2015M1034438

PATIENT

DRUGS (4)
  1. CIPROFLOXACINA MYLAN GENERICS 500 MG COMPRESSE RIVESTITE CON FILM [Suspect]
     Active Substance: CIPROFLOXACIN
     Indication: OROPHARYNGEAL PAIN
  2. DAIVONEX [Concomitant]
     Active Substance: CALCIPOTRIENE
     Indication: PRODUCT USED FOR UNKNOWN INDICATION
     Dosage: UNK
  3. CIPROFLOXACINA MYLAN GENERICS 500 MG COMPRESSE RIVESTITE CON FILM [Suspect]
     Active Substance: CIPROFLOXACIN
     Indication: BRONCHIAL DISORDER
     Dosage: 500 MG, UNK
     Route: 048
     Dates: start: 20150925, end: 20150926
  4. BENTELAN [Concomitant]
     Active Substance: BETAMETHASONE SODIUM PHOSPHATE
     Indication: PRODUCT USED FOR UNKNOWN INDICATION
     Dosage: UNK
     Dates: start: 20150925, end: 20150925

REACTIONS (4)
  - Cyanosis [Fatal]
  - Anaphylactic shock [Fatal]
  - Dyspnoea [Fatal]
  - Respiratory arrest [Fatal]

NARRATIVE: CASE EVENT DATE: 20150926
